FAERS Safety Report 4922536-7 (Version None)
Quarter: 2006Q1

REPORT INFORMATION
  Report Type: 
  Country: None (occurrence: None)
  Receive Date: 20060224
  Receipt Date: 20060215
  Transmission Date: 20060701
  Serious: Yes (Hospitalization)
  Sender: FDA-Public Use
  Company Number: US-ROCHE-436880

PATIENT
  Age: 63 Year
  Sex: Male

DRUGS (2)
  1. PEGASYS [Suspect]
     Dosage: STRENGTH REPORTED AS 180 MCG/0.5 ML. FREQUENCY REPORTED AS EVERY WEEK.
     Route: 058
     Dates: start: 20050509
  2. RIBAVIRIN [Suspect]
     Route: 048
     Dates: start: 20050509

REACTIONS (2)
  - ANAEMIA [None]
  - NEPHROLITHIASIS [None]
